FAERS Safety Report 15898615 (Version 3)
Quarter: 2019Q1

REPORT INFORMATION
  Report Type: Report from Study
  Country: US (occurrence: US)
  Receive Date: 20190201
  Receipt Date: 20190313
  Transmission Date: 20190417
  Serious: Yes (Other)
  Sender: FDA-Public Use
  Company Number: US-AMGEN INC.-USASP2019014768

PATIENT
  Age: 57 Year
  Sex: Female
  Weight: 111.11 kg

DRUGS (1)
  1. AIMOVIG [Suspect]
     Active Substance: ERENUMAB-AOOE
     Indication: MIGRAINE PROPHYLAXIS
     Dosage: 70 MG, QMO
     Route: 065
     Dates: start: 20181217

REACTIONS (3)
  - Malaise [Unknown]
  - Viral upper respiratory tract infection [Not Recovered/Not Resolved]
  - Lower respiratory tract infection viral [Not Recovered/Not Resolved]

NARRATIVE: CASE EVENT DATE: 201812
